FAERS Safety Report 19818125 (Version 1)
Quarter: 2021Q3

REPORT INFORMATION
  Report Type: Spontaneous
  Country: US (occurrence: US)
  Receive Date: 20210911
  Receipt Date: 20210911
  Transmission Date: 20211014
  Serious: Yes (Other)
  Sender: FDA-Public Use
  Company Number: US-TAKEDA-2021TUS054829

PATIENT
  Age: 34 Year
  Weight: 59 kg

DRUGS (2)
  1. GAMMAGARD LIQUID [Suspect]
     Active Substance: HUMAN IMMUNOGLOBULIN G
     Indication: PRIMARY IMMUNODEFICIENCY SYNDROME
     Dosage: 32 GRAM, Q2WEEKS
     Route: 051
  2. GAMMAGARD LIQUID [Suspect]
     Active Substance: HUMAN IMMUNOGLOBULIN G
     Dosage: UNK UNK, MONTHLY
     Route: 051

REACTIONS (15)
  - Irritable bowel syndrome [Unknown]
  - White blood cell count decreased [Unknown]
  - Pruritus [Unknown]
  - Protein urine present [Unknown]
  - Renal disorder [Unknown]
  - Blood immunoglobulin A decreased [Unknown]
  - Sinusitis [Unknown]
  - Drug intolerance [Unknown]
  - Incorrect drug administration rate [Unknown]
  - Inappropriate schedule of product administration [Unknown]
  - Gastrointestinal infection [Unknown]
  - Chest pain [Unknown]
  - Soft tissue infection [Unknown]
  - Infection [Unknown]
  - Blood urea increased [Unknown]
